FAERS Safety Report 12766659 (Version 1)
Quarter: 2016Q3

REPORT INFORMATION
  Report Type: Spontaneous
  Country: RU (occurrence: RU)
  Receive Date: 20160921
  Receipt Date: 20160921
  Transmission Date: 20161109
  Serious: Yes (Hospitalization, Other)
  Sender: FDA-Public Use
  Company Number: RU-PFIZER INC-2016433052

PATIENT
  Age: 34 Year
  Sex: Female
  Weight: 68 kg

DRUGS (2)
  1. DOSTINEX [Suspect]
     Active Substance: CABERGOLINE
     Dosage: 0.25 MG, 2X/WEEK
     Route: 048
     Dates: start: 201508, end: 201602
  2. DOSTINEX [Suspect]
     Active Substance: CABERGOLINE
     Indication: HYPERPROLACTINAEMIA
     Dosage: 0.25 MG, WEEKLY
     Route: 048
     Dates: start: 201507, end: 201508

REACTIONS (7)
  - Traumatic lung injury [Recovered/Resolved with Sequelae]
  - Bullous lung disease [Recovered/Resolved with Sequelae]
  - Tachycardia [Recovered/Resolved]
  - Pneumothorax spontaneous [Recovered/Resolved]
  - Syncope [Recovered/Resolved]
  - Pneumothorax [Recovered/Resolved with Sequelae]
  - Blood pressure decreased [Recovered/Resolved]

NARRATIVE: CASE EVENT DATE: 2015
